FAERS Safety Report 7907109-6 (Version None)
Quarter: 2011Q4

REPORT INFORMATION
  Report Type: 
  Country: None (occurrence: None)
  Receive Date: 20111110
  Receipt Date: 20110603
  Transmission Date: 20120403
  Serious: No
  Sender: FDA-Public Use
  Company Number: US-ASTRAZENECA-2011SE34569

PATIENT
  Sex: Female

DRUGS (2)
  1. CRESTOR [Suspect]
     Route: 048
  2. ZESTRIL [Suspect]
     Route: 048

REACTIONS (4)
  - RENAL DISORDER [None]
  - DIABETES MELLITUS [None]
  - ASTHMA [None]
  - CARDIAC DISORDER [None]
